FAERS Safety Report 8514072-6 (Version None)
Quarter: 2012Q3

REPORT INFORMATION
  Report Type: 
  Country: None (occurrence: None)
  Receive Date: 20120717
  Receipt Date: 20120706
  Transmission Date: 20120928
  Serious: Yes (Hospitalization)
  Sender: FDA-Public Use
  Company Number: FR-VERTEX PHARMACEUTICALS INC.-000000000000000782

PATIENT
  Sex: Male
  Weight: 59 kg

DRUGS (11)
  1. TRAMADOL HCL [Concomitant]
     Indication: PAIN
     Dosage: DOSAGE FORM: UNSPECIFIED
     Dates: start: 20050101
  2. ZOPICLONE [Concomitant]
     Indication: SLEEP DISORDER
     Dates: start: 20050101
  3. COPEGUS [Concomitant]
     Indication: HEPATITIS C
     Dates: start: 20120124
  4. INCIVO [Suspect]
     Indication: HEPATITIS C
     Dosage: DOSAGE FORM: TABLET
     Dates: start: 20120124, end: 20120417
  5. CREON [Concomitant]
     Indication: PANCREATIC INSUFFICIENCY
     Dates: start: 20050101
  6. METFORMIN HCL [Concomitant]
     Indication: DIABETES MELLITUS
     Dates: start: 20050101
  7. PEGASYS [Concomitant]
     Indication: HEPATITIS C
     Dates: start: 20120124
  8. OMEPRAZOLE [Concomitant]
     Indication: GASTROOESOPHAGEAL REFLUX DISEASE
     Dates: start: 20050101
  9. CARBOSYMAG [Concomitant]
     Indication: DYSPEPSIA
     Dates: start: 20050101
  10. ACETAMINOPHEN [Concomitant]
     Indication: PAIN
     Dates: start: 20050101
  11. REPAGLINIDE [Concomitant]
     Indication: DIABETES MELLITUS
     Dates: start: 20050101

REACTIONS (2)
  - ANAEMIA [None]
  - PANCREATITIS [None]
